FAERS Safety Report 10997357 (Version 1)
Quarter: 2015Q2

REPORT INFORMATION
  Report Type: Spontaneous
  Country: US (occurrence: US)
  Receive Date: 20150408
  Receipt Date: 20150408
  Transmission Date: 20150821
  Serious: No
  Sender: FDA-Public Use
  Company Number: US-BANPHARM-20142639

PATIENT
  Age: 77 Year
  Sex: Female
  Weight: 65.77 kg

DRUGS (5)
  1. ALEVE [Suspect]
     Active Substance: NAPROXEN SODIUM
     Indication: ARTHRITIS
     Dosage: 1 DF, PRN,
     Route: 048
     Dates: start: 201403
  2. SIMVASTATIN. [Concomitant]
     Active Substance: SIMVASTATIN
  3. CITRACAL MAXIUM CAPLETS [Concomitant]
  4. BAYER ENTERIC ASA [Concomitant]
     Dosage: 81 MG
  5. DILTIAZEM [Concomitant]
     Active Substance: DILTIAZEM

REACTIONS (1)
  - Drug ineffective [Unknown]

NARRATIVE: CASE EVENT DATE: 20140425
